FAERS Safety Report 14070441 (Version 1)
Quarter: 2017Q4

REPORT INFORMATION
  Report Type: Spontaneous
  Country: US (occurrence: US)
  Receive Date: 20171011
  Receipt Date: 20171011
  Transmission Date: 20180321
  Serious: No
  Sender: FDA-Public Use
  Company Number: US-ASTRAZENECA-2017SE49442

PATIENT
  Age: 60 Year
  Sex: Female

DRUGS (1)
  1. ZOMIG [Suspect]
     Active Substance: ZOLMITRIPTAN
     Indication: MIGRAINE
     Dosage: 5 MG, ONE SPRAY AT ONSET MAY REPEAT IN 2 HOURS
     Route: 045

REACTIONS (3)
  - Headache [Unknown]
  - Insomnia [Unknown]
  - Drug dose omission [Unknown]
